FAERS Safety Report 5206200-5 (Version None)
Quarter: 2007Q1

REPORT INFORMATION
  Report Type: 
  Country: None (occurrence: None)
  Receive Date: 20070111
  Receipt Date: 20070104
  Transmission Date: 20070707
  Serious: Yes (Hospitalization)
  Sender: FDA-Public Use
  Company Number: AR-BRISTOL-MYERS SQUIBB COMPANY-13582945

PATIENT
  Age: 43 Year
  Sex: Female

DRUGS (1)
  1. ENTECAVIR [Suspect]

REACTIONS (4)
  - ANAEMIA [None]
  - ANAL HAEMORRHAGE [None]
  - BRADYCARDIA [None]
  - HYPOTENSION [None]
